FAERS Safety Report 25450687 (Version 1)
Quarter: 2025Q2

REPORT INFORMATION
  Report Type: Spontaneous
  Country: US (occurrence: US)
  Receive Date: 20250618
  Receipt Date: 20250618
  Transmission Date: 20250716
  Serious: Yes (Hospitalization)
  Sender: MYLAN
  Company Number: US-MYLANLABS-2025M1050699

PATIENT
  Age: 41 Year
  Sex: Male

DRUGS (32)
  1. CIDOFOVIR [Suspect]
     Active Substance: CIDOFOVIR
     Indication: Monkeypox
     Dosage: 5 MILLIGRAM/KILOGRAM, QW, INTRAVENOUS INFUSION
  2. CIDOFOVIR [Suspect]
     Active Substance: CIDOFOVIR
     Dosage: 5 MILLIGRAM/KILOGRAM, QW, INTRAVENOUS INFUSION
     Route: 042
  3. CIDOFOVIR [Suspect]
     Active Substance: CIDOFOVIR
     Dosage: 5 MILLIGRAM/KILOGRAM, QW, INTRAVENOUS INFUSION
     Route: 042
  4. CIDOFOVIR [Suspect]
     Active Substance: CIDOFOVIR
     Dosage: 5 MILLIGRAM/KILOGRAM, QW, INTRAVENOUS INFUSION
  5. TECOVIRIMAT [Concomitant]
     Active Substance: TECOVIRIMAT
     Indication: Monkeypox
     Dosage: 600 MILLIGRAM, BID
     Dates: start: 202208
  6. TECOVIRIMAT [Concomitant]
     Active Substance: TECOVIRIMAT
     Dosage: 600 MILLIGRAM, BID
     Dates: start: 202208
  7. TECOVIRIMAT [Concomitant]
     Active Substance: TECOVIRIMAT
     Dosage: 600 MILLIGRAM, BID
     Route: 048
     Dates: start: 202208
  8. TECOVIRIMAT [Concomitant]
     Active Substance: TECOVIRIMAT
     Dosage: 600 MILLIGRAM, BID
     Route: 048
     Dates: start: 202208
  9. TECOVIRIMAT [Concomitant]
     Active Substance: TECOVIRIMAT
     Dosage: 600 MILLIGRAM, BID
  10. TECOVIRIMAT [Concomitant]
     Active Substance: TECOVIRIMAT
     Dosage: 600 MILLIGRAM, BID
  11. TECOVIRIMAT [Concomitant]
     Active Substance: TECOVIRIMAT
     Dosage: 600 MILLIGRAM, BID
     Route: 048
  12. TECOVIRIMAT [Concomitant]
     Active Substance: TECOVIRIMAT
     Dosage: 600 MILLIGRAM, BID
     Route: 048
  13. PROBENECID [Concomitant]
     Active Substance: PROBENECID
     Indication: Product used for unknown indication
  14. PROBENECID [Concomitant]
     Active Substance: PROBENECID
  15. PROBENECID [Concomitant]
     Active Substance: PROBENECID
     Route: 065
  16. PROBENECID [Concomitant]
     Active Substance: PROBENECID
     Route: 065
  17. PROBENECID [Concomitant]
     Active Substance: PROBENECID
  18. PROBENECID [Concomitant]
     Active Substance: PROBENECID
  19. PROBENECID [Concomitant]
     Active Substance: PROBENECID
     Route: 065
  20. PROBENECID [Concomitant]
     Active Substance: PROBENECID
     Route: 065
  21. BICTEGRAVIR [Concomitant]
     Active Substance: BICTEGRAVIR
     Indication: Antiretroviral therapy
  22. BICTEGRAVIR [Concomitant]
     Active Substance: BICTEGRAVIR
     Indication: HIV infection
     Route: 065
  23. BICTEGRAVIR [Concomitant]
     Active Substance: BICTEGRAVIR
     Route: 065
  24. BICTEGRAVIR [Concomitant]
     Active Substance: BICTEGRAVIR
  25. TENOFOVIR ALAFENAMIDE [Concomitant]
     Active Substance: TENOFOVIR ALAFENAMIDE
     Indication: Antiretroviral therapy
  26. TENOFOVIR ALAFENAMIDE [Concomitant]
     Active Substance: TENOFOVIR ALAFENAMIDE
     Indication: HIV infection
     Route: 065
  27. TENOFOVIR ALAFENAMIDE [Concomitant]
     Active Substance: TENOFOVIR ALAFENAMIDE
     Route: 065
  28. TENOFOVIR ALAFENAMIDE [Concomitant]
     Active Substance: TENOFOVIR ALAFENAMIDE
  29. EMTRICITABINE [Concomitant]
     Active Substance: EMTRICITABINE
     Indication: Antiretroviral therapy
  30. EMTRICITABINE [Concomitant]
     Active Substance: EMTRICITABINE
     Indication: HIV infection
     Route: 065
  31. EMTRICITABINE [Concomitant]
     Active Substance: EMTRICITABINE
     Route: 065
  32. EMTRICITABINE [Concomitant]
     Active Substance: EMTRICITABINE

REACTIONS (1)
  - Iridocyclitis [Unknown]
